FAERS Safety Report 10234061 (Version 1)
Quarter: 2014Q2

REPORT INFORMATION
  Report Type: Spontaneous
  Country: SK (occurrence: SK)
  Receive Date: 20140612
  Receipt Date: 20140612
  Transmission Date: 20141212
  Serious: Yes (Other)
  Sender: FDA-Public Use
  Company Number: SK-BAXTER-2014BAX030428

PATIENT
  Sex: 0

DRUGS (2)
  1. KIOVIG 100 MG/ML INF?ZNY INTRAVEN?ZNY ROZTOK [Suspect]
     Indication: RASMUSSEN ENCEPHALITIS
     Dosage: 0.4 G/KG
     Route: 042
  2. KIOVIG 100 MG/ML INF?ZNY INTRAVEN?ZNY ROZTOK [Suspect]
     Dosage: 0.4 G/KG
     Route: 042

REACTIONS (1)
  - Disease progression [Recovering/Resolving]
